FAERS Safety Report 9801210 (Version 2)
Quarter: 2014Q1

REPORT INFORMATION
  Report Type: Spontaneous
  Country: US (occurrence: US)
  Receive Date: 20140107
  Receipt Date: 20140115
  Transmission Date: 20141002
  Serious: Yes (Hospitalization, Other)
  Sender: FDA-Public Use
  Company Number: US-PFIZER INC-2014002139

PATIENT
  Age: 66 Year
  Sex: Female
  Weight: 46.71 kg

DRUGS (9)
  1. REVATIO [Suspect]
     Indication: PULMONARY HYPERTENSION
     Dosage: 20 MG, 3X/DAY
     Dates: start: 20090612
  2. REVATIO [Suspect]
     Indication: COR PULMONALE CHRONIC
  3. PREDNISONE [Concomitant]
     Indication: SARCOIDOSIS
     Dosage: 10 MG, DAILY
  4. LETAIRIS [Concomitant]
     Indication: PULMONARY HYPERTENSION
     Dosage: 10 MG, DAILY
  5. ADVAIR [Concomitant]
     Indication: DYSPNOEA
     Dosage: 500 MCG/50 MCG TWO TIMES A DAY
  6. PRILOSEC [Concomitant]
     Indication: GASTROOESOPHAGEAL REFLUX DISEASE
     Dosage: 40 MG, DAILY
  7. SYNTHROID [Concomitant]
     Indication: HYPOTHYROIDISM
     Dosage: 0.15 MG, DAILY
  8. MYCOBUTIN [Concomitant]
     Indication: MYCOBACTERIUM AVIUM COMPLEX INFECTION
     Dosage: 150 MG, 3X/WEEK
  9. CLARITHROMYCIN [Concomitant]
     Indication: MYCOBACTERIUM AVIUM COMPLEX INFECTION
     Dosage: 500 MG, 3X/WEEK

REACTIONS (6)
  - Lung infection [Unknown]
  - Renal failure [Unknown]
  - Diverticulitis [Unknown]
  - Peripheral artery thrombosis [Unknown]
  - White blood cell count decreased [Unknown]
  - Expired drug administered [Unknown]
